FAERS Safety Report 18305247 (Version 3)
Quarter: 2020Q4

REPORT INFORMATION
  Report Type: Spontaneous
  Country: US (occurrence: US)
  Receive Date: 20200923
  Receipt Date: 20201106
  Transmission Date: 20210113
  Serious: Yes (Other)
  Sender: FDA-Public Use
  Company Number: US-BEH-2020122387

PATIENT
  Age: 59 Year
  Sex: Female

DRUGS (29)
  1. ALLOPURINOL. [Concomitant]
     Active Substance: ALLOPURINOL
  2. BUDESONIDE ALMUS [Concomitant]
  3. CALCIUM + VIT D [Concomitant]
     Active Substance: CALCIUM\VITAMIN D
  4. FLONASE [Concomitant]
     Active Substance: FLUTICASONE PROPIONATE
  5. IPRATROPIUM BROMIDE. [Concomitant]
     Active Substance: IPRATROPIUM BROMIDE
  6. LIPITOR [Concomitant]
     Active Substance: ATORVASTATIN CALCIUM
  7. SPIRIVA [Concomitant]
     Active Substance: TIOTROPIUM BROMIDE MONOHYDRATE
  8. TESSALON [Concomitant]
     Active Substance: BENZONATATE
  9. FISH OIL [Concomitant]
     Active Substance: FISH OIL
  10. MULTIPLE VITAMINS [Concomitant]
     Active Substance: VITAMINS
  11. PREDNISONE. [Concomitant]
     Active Substance: PREDNISONE
  12. PLAQUENIL [Concomitant]
     Active Substance: HYDROXYCHLOROQUINE SULFATE
  13. APAP [Concomitant]
     Active Substance: ACETAMINOPHEN
     Indication: PREMEDICATION
  14. HIZENTRA [Suspect]
     Active Substance: HUMAN IMMUNOGLOBULIN G
     Dosage: 32 GRAM, TOT
     Route: 058
     Dates: start: 20201017, end: 20201017
  15. HIZENTRA [Suspect]
     Active Substance: HUMAN IMMUNOGLOBULIN G
     Indication: IMMUNODEFICIENCY COMMON VARIABLE
     Dosage: 32 GRAM, QOW
     Route: 058
     Dates: start: 2018
  16. BIOTIN [Concomitant]
     Active Substance: BIOTIN
  17. CYMBALTA [Concomitant]
     Active Substance: DULOXETINE HYDROCHLORIDE
  18. HYDROCHLOROTHIAZIDE. [Concomitant]
     Active Substance: HYDROCHLOROTHIAZIDE
  19. PULMICORT TURBUHALER [Concomitant]
     Active Substance: BUDESONIDE
  20. TIZANIDINE HCL [Concomitant]
     Active Substance: TIZANIDINE HYDROCHLORIDE
  21. IMITREX [Concomitant]
     Active Substance: SUMATRIPTAN SUCCINATE
  22. SINGULAIR [Concomitant]
     Active Substance: MONTELUKAST SODIUM
  23. LOSARTAN POTASSIUM. [Concomitant]
     Active Substance: LOSARTAN POTASSIUM
  24. IPRATROPIUM BROMIDE/ALBUTEROL SULFATE [Concomitant]
     Active Substance: ALBUTEROL SULFATE\IPRATROPIUM BROMIDE
  25. LYRICA [Concomitant]
     Active Substance: PREGABALIN
  26. BENADRYL [Concomitant]
     Active Substance: DIPHENHYDRAMINE HYDROCHLORIDE
     Indication: PREMEDICATION
  27. HIZENTRA [Suspect]
     Active Substance: HUMAN IMMUNOGLOBULIN G
     Dosage: UNK
     Route: 058
  28. METHOCARBAMOL. [Concomitant]
     Active Substance: METHOCARBAMOL
  29. CELEBREX [Concomitant]
     Active Substance: CELECOXIB

REACTIONS (16)
  - Infusion site pain [Not Recovered/Not Resolved]
  - Infusion site inflammation [Unknown]
  - Infusion site induration [Unknown]
  - Injection site bruising [Recovered/Resolved]
  - Fatigue [Not Recovered/Not Resolved]
  - Infusion site pain [Unknown]
  - Injection site mass [Recovered/Resolved]
  - Infusion site nodule [Not Recovered/Not Resolved]
  - Asthma [Not Recovered/Not Resolved]
  - Infusion site erythema [Unknown]
  - Headache [Not Recovered/Not Resolved]
  - Blood pressure increased [Not Recovered/Not Resolved]
  - Infusion site extravasation [Unknown]
  - Cellulitis [Recovered/Resolved]
  - Infusion site swelling [Unknown]
  - Injection site discomfort [Recovered/Resolved]

NARRATIVE: CASE EVENT DATE: 20201017
